FAERS Safety Report 15593017 (Version 2)
Quarter: 2018Q4

REPORT INFORMATION
  Report Type: Report from Study
  Country: BR (occurrence: BR)
  Receive Date: 20181106
  Receipt Date: 20181212
  Transmission Date: 20190205
  Serious: Yes (Other)
  Sender: FDA-Public Use
  Company Number: BR-SHIRE-BR201842370

PATIENT

DRUGS (1)
  1. ELAPRASE [Suspect]
     Active Substance: IDURSULFASE
     Indication: MUCOPOLYSACCHARIDOSIS II
     Dosage: 6 VIALS, EVERY 15 DAYS
     Route: 065
     Dates: start: 200912

REACTIONS (3)
  - Off label use [Unknown]
  - Otitis externa [Recovered/Resolved]
  - Inappropriate schedule of product administration [Unknown]
